FAERS Safety Report 24456087 (Version 2)
Quarter: 2024Q4

REPORT INFORMATION
  Report Type: Report from Study
  Country: US (occurrence: US)
  Receive Date: 20241017
  Receipt Date: 20241018
  Transmission Date: 20250115
  Serious: No
  Sender: ROCHE
  Company Number: US-ROCHE-3498818

PATIENT
  Age: 15 Year
  Sex: Female
  Weight: 80.8 kg

DRUGS (2)
  1. RITUXIMAB [Suspect]
     Active Substance: RITUXIMAB
     Indication: Product used for unknown indication
     Route: 065
  2. HEMLIBRA [Suspect]
     Active Substance: EMICIZUMAB-KXWH
     Indication: Coagulopathy
     Dosage: 150 MG/ML
     Route: 065

REACTIONS (1)
  - Drug hypersensitivity [Unknown]
